FAERS Safety Report 4357963-2 (Version None)
Quarter: 2004Q2

REPORT INFORMATION
  Report Type: 
  Country: None (occurrence: None)
  Receive Date: 20040510
  Receipt Date: 20040427
  Transmission Date: 20050107
  Serious: Yes (Other)
  Sender: FDA-Public Use
  Company Number: 205807

PATIENT
  Age: 39 Year
  Sex: Female
  Weight: 146.5 kg

DRUGS (8)
  1. HERCEPTIN [Suspect]
     Indication: BREAST CANCER
     Dosage: 530 MG, SINGLE, INTRAVENOUS; 265 MG, 1/WEEK, INTRAVENOUS
     Route: 042
     Dates: start: 20031104, end: 20031104
  2. TAXOL [Concomitant]
  3. ATENOLOL [Concomitant]
  4. MULTIVITAMIN (MULTIVITAMINS NOS) [Concomitant]
  5. COUMADIN [Concomitant]
  6. CELEBREX [Concomitant]
  7. LAMISIL (TERBINAFINE HYDROCHLORIDE) [Concomitant]
  8. AVALIDE (HYDROCHLOROTHIAZIDE, IRBESARTAN) [Concomitant]

REACTIONS (1)
  - HAEMOLYSIS [None]
